FAERS Safety Report 5812143-6 (Version None)
Quarter: 2008Q3

REPORT INFORMATION
  Report Type: 
  Country: None (occurrence: None)
  Receive Date: 20080714
  Receipt Date: 20080630
  Transmission Date: 20090109
  Serious: Yes (Hospitalization, Other)
  Sender: FDA-Public Use
  Company Number: FRVA20080014

PATIENT
  Age: 38 Year
  Sex: Male

DRUGS (2)
  1. FROVA [Suspect]
     Indication: MIGRAINE
     Dosage: 2.5 MG, 1 OR 2 TABLETS, PER ORAL
     Route: 048
  2. ACETYLSALICYLIC ACID/PARACETAMOL [Suspect]
     Indication: MIGRAINE

REACTIONS (2)
  - MANIA [None]
  - RETROGRADE AMNESIA [None]
